FAERS Safety Report 4586586-5 (Version None)
Quarter: 2005Q1

REPORT INFORMATION
  Report Type: 
  Country: None (occurrence: None)
  Receive Date: 20050218
  Receipt Date: 20040513
  Transmission Date: 20050727
  Serious: Yes (Life-Threatening, Other)
  Sender: FDA-Public Use
  Company Number: US-BRISTOL-MYERS SQUIBB COMPANY-12585899

PATIENT
  Age: 51 Year
  Sex: Female
  Weight: 91 kg

DRUGS (12)
  1. TAXOL [Suspect]
     Indication: LUNG NEOPLASM MALIGNANT
     Dosage: HAD RECEIVED 9.4 MG WHEN REACTION OCCURRED
     Route: 042
     Dates: start: 20040512, end: 20040512
  2. CARBOPLATIN [Concomitant]
  3. RADIOTHERAPY [Concomitant]
  4. DECADRON [Concomitant]
     Indication: PREMEDICATION
     Route: 042
     Dates: start: 20040512, end: 20040512
  5. KYTRIL [Concomitant]
     Indication: PREMEDICATION
     Route: 042
     Dates: start: 20040512, end: 20040512
  6. PEPCID [Concomitant]
     Indication: PREMEDICATION
     Route: 042
     Dates: start: 20040512, end: 20040512
  7. BENADRYL [Concomitant]
     Indication: PREMEDICATION
     Route: 042
     Dates: start: 20040512, end: 20040512
  8. SOLU-MEDROL [Concomitant]
     Indication: PREMEDICATION
     Route: 042
     Dates: start: 20040512, end: 20040512
  9. ALBUTEROL [Concomitant]
     Indication: PREMEDICATION
  10. PREDNISONE [Concomitant]
  11. COMPAZINE [Concomitant]
  12. HYCODAN [Concomitant]

REACTIONS (1)
  - HYPERSENSITIVITY [None]
